FAERS Safety Report 7339487-3 (Version None)
Quarter: 2011Q1

REPORT INFORMATION
  Report Type: 
  Country: None (occurrence: None)
  Receive Date: 20110308
  Receipt Date: 20110126
  Transmission Date: 20110831
  Serious: No
  Sender: FDA-Public Use
  Company Number: US-AMGEN-USASP2011004998

PATIENT
  Age: 79 Year
  Sex: Female

DRUGS (9)
  1. NEXIUM [Concomitant]
  2. LIPITOR [Concomitant]
  3. TYLENOL (CAPLET) [Concomitant]
  4. DIOVAN [Concomitant]
  5. CALCIUM [Concomitant]
  6. METOPROLOL [Concomitant]
     Dosage: UNK
  7. PROLIA [Suspect]
     Indication: OSTEOPOROSIS POSTMENOPAUSAL
     Dosage: 60 MG, Q6MO
     Dates: start: 20101011
  8. ASPIRIN [Concomitant]
  9. MULTIVITAMIN                       /00097801/ [Concomitant]

REACTIONS (4)
  - FEELING ABNORMAL [None]
  - CYSTITIS [None]
  - ONYCHOCLASIS [None]
  - BLOOD URINE PRESENT [None]
